FAERS Safety Report 12669248 (Version 1)
Quarter: 2016Q3

REPORT INFORMATION
  Report Type: Spontaneous
  Country: BE (occurrence: BE)
  Receive Date: 20160819
  Receipt Date: 20160819
  Transmission Date: 20161109
  Serious: Yes (Other)
  Sender: FDA-Public Use
  Company Number: BE-ALKEM LABORATORIES LIMITED-BE-ALKEM-2016-00127

PATIENT
  Age: 55 Year
  Sex: Male

DRUGS (17)
  1. METFORMIN [Concomitant]
     Active Substance: METFORMIN HYDROCHLORIDE
     Indication: GLUCOSE TOLERANCE IMPAIRED
     Dosage: 500 MG, BID
     Route: 048
     Dates: start: 2012
  2. ZOLEDRONIC ACID [Concomitant]
     Active Substance: ZOLEDRONIC ACID
     Indication: THORACIC VERTEBRAL FRACTURE
     Dosage: UNKNOWN
     Dates: start: 2012
  3. TACROLIMUS. [Interacting]
     Active Substance: TACROLIMUS
     Indication: IMMUNOSUPPRESSION
     Dosage: 0.5 MG, BID
  4. METHYLPREDNISOLONE. [Interacting]
     Active Substance: METHYLPREDNISOLONE
     Indication: IMMUNOSUPPRESSION
     Dosage: UNKNOWN
     Route: 042
  5. METHYLPREDNISOLONE. [Interacting]
     Active Substance: METHYLPREDNISOLONE
     Dosage: 500 MG, UNK
     Route: 042
     Dates: start: 2012
  6. POSACONAZOLE [Suspect]
     Active Substance: POSACONAZOLE
     Indication: ASPERGILLOMA
     Dosage: 400 MG, BID
     Dates: start: 2012, end: 2012
  7. ITRACONAZOLE. [Concomitant]
     Active Substance: ITRACONAZOLE
     Indication: ASPERGILLUS INFECTION
     Dosage: 100 MG, UNK
     Route: 048
  8. METHYLPREDNISOLONE. [Interacting]
     Active Substance: METHYLPREDNISOLONE
     Indication: TRANSPLANT REJECTION
     Dosage: 4 MG, QD
     Route: 042
  9. FENTANYL. [Interacting]
     Active Substance: FENTANYL
     Indication: THORACIC VERTEBRAL FRACTURE
     Dosage: UNK
     Route: 062
     Dates: start: 2012, end: 2012
  10. SULFAMETHOXAZOLE AND TRIMETHOPRIM [Concomitant]
     Active Substance: SULFAMETHOXAZOLE\TRIMETHOPRIM
     Indication: PSEUDOMONAS INFECTION
     Dosage: UNK, BID
     Route: 048
  11. MYCOPHENOLATE MOFETIL. [Suspect]
     Active Substance: MYCOPHENOLATE MOFETIL
     Indication: IMMUNOSUPPRESSION
     Dosage: UNKNOWN
  12. CASPOFUNGIN [Concomitant]
     Active Substance: CASPOFUNGIN
     Indication: ASPERGILLUS INFECTION
     Dosage: 50 MG, UNK
     Route: 042
     Dates: start: 2012
  13. CIPROFLOXACIN. [Concomitant]
     Active Substance: CIPROFLOXACIN
     Indication: SINUSITIS BACTERIAL
     Dosage: 500 MG, BID
     Route: 048
     Dates: start: 2012
  14. MYCOPHENOLATE MOFETIL. [Interacting]
     Active Substance: MYCOPHENOLATE MOFETIL
     Dosage: 500 MG, BID
  15. VORICONAZOLE. [Concomitant]
     Active Substance: VORICONAZOLE
     Indication: ASPERGILLOMA
     Dosage: 200 MG, BID
     Route: 048
     Dates: start: 2012
  16. AMPHOTERICINE B, LIPOSOME [Concomitant]
     Active Substance: AMPHOTERICIN B
     Indication: PRODUCT USED FOR UNKNOWN INDICATION
     Dosage: 3 MG/KG, UNK
     Route: 042
     Dates: start: 2012
  17. CITALOPRAM [Interacting]
     Active Substance: CITALOPRAM HYDROBROMIDE
     Dosage: UNK
     Dates: start: 2012, end: 2012

REACTIONS (15)
  - Nephropathy toxic [Unknown]
  - Glucose tolerance impaired [Unknown]
  - Sinusitis bacterial [Unknown]
  - Thoracic vertebral fracture [Unknown]
  - Aspergillus infection [Unknown]
  - Pneumonia pseudomonal [Unknown]
  - Transplant rejection [Unknown]
  - Aspergilloma [Unknown]
  - Drug interaction [Unknown]
  - Pseudomonas infection [Unknown]
  - Abscess jaw [Unknown]
  - Stupor [Unknown]
  - Inappropriate antidiuretic hormone secretion [Unknown]
  - Cytomegalovirus viraemia [Unknown]
  - Hyponatraemia [Unknown]

NARRATIVE: CASE EVENT DATE: 2012
